FAERS Safety Report 6703663-0 (Version None)
Quarter: 2010Q2

REPORT INFORMATION
  Report Type: 
  Country: None (occurrence: None)
  Receive Date: 20100423
  Receipt Date: 20090429
  Transmission Date: 20101027
  Serious: Yes (Other)
  Sender: FDA-Public Use
  Company Number: ALL1-2009-01178

PATIENT
  Age: 17 Year
  Sex: Female

DRUGS (2)
  1. VYVANSE [Suspect]
     Indication: ATTENTION DEFICIT/HYPERACTIVITY DISORDER
     Dosage: 20 MG, 1X/DAY;QD, ORAL; 30 MG, 1X/DAY;QD, ORAL
     Route: 048
     Dates: start: 20090301, end: 20090427
  2. VYVANSE [Suspect]
     Indication: ATTENTION DEFICIT/HYPERACTIVITY DISORDER
     Dosage: 20 MG, 1X/DAY;QD, ORAL; 30 MG, 1X/DAY;QD, ORAL
     Route: 048
     Dates: start: 20090427

REACTIONS (3)
  - DEHYDRATION [None]
  - OFF LABEL USE [None]
  - SYNCOPE [None]
